FAERS Safety Report 8337176-X (Version None)
Quarter: 2012Q2

REPORT INFORMATION
  Report Type: 
  Country: None (occurrence: None)
  Receive Date: 20120504
  Receipt Date: 20120427
  Transmission Date: 20120825
  Serious: Yes (Other)
  Sender: FDA-Public Use
  Company Number: PHFR2012GB002255

PATIENT
  Sex: Male

DRUGS (6)
  1. LORAZEPAM [Concomitant]
     Dosage: 1 MG, DAILY
     Route: 048
  2. ZOPICLONE [Concomitant]
     Dosage: 7.5 MG IF REQUIRED
  3. PROCYCLIDINE HYDROCHLORIDE 2MG TAB [Concomitant]
     Dosage: 5 MG, TID
     Route: 048
  4. AMISULPRIDE [Concomitant]
     Dosage: 600 MG, BID
     Route: 048
  5. CLOZARIL [Suspect]
     Indication: SCHIZOPHRENIA
     Dosage: 300 MG, QD
     Route: 048
     Dates: start: 20120329
  6. OMEPRAZOLE [Concomitant]
     Dosage: 40 MG, UNK
     Route: 048

REACTIONS (4)
  - HEART RATE INCREASED [None]
  - INFECTION [None]
  - WHITE BLOOD CELL COUNT INCREASED [None]
  - BODY TEMPERATURE INCREASED [None]
